FAERS Safety Report 12246839 (Version 1)
Quarter: 2016Q2

REPORT INFORMATION
  Report Type: Spontaneous
  Country: US (occurrence: US)
  Receive Date: 20160407
  Receipt Date: 20160407
  Transmission Date: 20160815
  Serious: Yes (Hospitalization, Other)
  Sender: FDA-Public Use
  Company Number: US-MDT-ADR-2016-00639

PATIENT
  Age: 42 Year
  Sex: Female

DRUGS (1)
  1. BACLOFEN. [Suspect]
     Active Substance: BACLOFEN
     Route: 037

REACTIONS (9)
  - Dyspnoea [Unknown]
  - Neurological symptom [Unknown]
  - Vision blurred [Unknown]
  - Dizziness [Unknown]
  - Diplopia [Unknown]
  - Headache [Unknown]
  - Asthenia [Unknown]
  - Hyperacusis [Unknown]
  - Seizure [Unknown]
